FAERS Safety Report 5702714-X (Version None)
Quarter: 2008Q2

REPORT INFORMATION
  Report Type: 
  Country: None (occurrence: None)
  Receive Date: 20080411
  Receipt Date: 20080328
  Transmission Date: 20081010
  Serious: Yes (Death)
  Sender: FDA-Public Use
  Company Number: A0721985A

PATIENT
  Age: 41 Year
  Sex: Male

DRUGS (3)
  1. BUPROPION HCL [Suspect]
     Indication: DRUG USE FOR UNKNOWN INDICATION
     Route: 048
     Dates: end: 20080301
  2. KADIAN [Suspect]
     Dosage: 20MG TWICE PER DAY
     Route: 048
     Dates: start: 20080201, end: 20080301
  3. COCAINE [Suspect]
     Indication: DRUG USE FOR UNKNOWN INDICATION

REACTIONS (3)
  - AORTIC VALVE DISEASE [None]
  - CARDIOMEGALY [None]
  - DRUG TOXICITY [None]
